FAERS Safety Report 7367968-5 (Version None)
Quarter: 2011Q1

REPORT INFORMATION
  Report Type: 
  Country: None (occurrence: None)
  Receive Date: 20110322
  Receipt Date: 20110315
  Transmission Date: 20110831
  Serious: Yes (Hospitalization, Other)
  Sender: FDA-Public Use
  Company Number: PHHY2010US86534

PATIENT
  Age: 32 Year
  Sex: Female

DRUGS (3)
  1. EXTAVIA [Suspect]
     Indication: MULTIPLE SCLEROSIS
     Dosage: 0.25 MG, QOD
     Route: 058
     Dates: start: 20101130
  2. MOTRIN [Concomitant]
  3. GABAPENTIN [Concomitant]
     Dosage: 300 MG, BID

REACTIONS (3)
  - BLADDER SPASM [None]
  - DYSURIA [None]
  - NEPHROLITHIASIS [None]
